FAERS Safety Report 6161960-4 (Version None)
Quarter: 2009Q2

REPORT INFORMATION
  Report Type: 
  Country: None (occurrence: None)
  Receive Date: 20090417
  Receipt Date: 20090417
  Transmission Date: 20091009
  Serious: No
  Sender: FDA-Public Use
  Company Number: None

PATIENT
  Age: 45 Year
  Sex: Female
  Weight: 44.4525 kg

DRUGS (1)
  1. CYMBALTA [Suspect]
     Indication: NEURALGIA
     Dosage: 30 MG DAILY PO (DURATION: ONE AND A  HALF YEARS)
     Route: 048
     Dates: start: 20070901, end: 20090401

REACTIONS (4)
  - DRUG WITHDRAWAL SYNDROME [None]
  - FEELING ABNORMAL [None]
  - IRRITABILITY [None]
  - PARAESTHESIA [None]
